FAERS Safety Report 6228156-9 (Version None)
Quarter: 2009Q2

REPORT INFORMATION
  Report Type: 
  Country: None (occurrence: None)
  Receive Date: 20090612
  Receipt Date: 20090601
  Transmission Date: 20091009
  Serious: Yes (Death)
  Sender: FDA-Public Use
  Company Number: US-ELI_LILLY_AND_COMPANY-US200906000367

PATIENT
  Age: 55 Year
  Sex: Female

DRUGS (7)
  1. STRATTERA [Suspect]
     Indication: ATTENTION DEFICIT/HYPERACTIVITY DISORDER
     Dosage: 60 MG, DAILY (1/D)
     Route: 065
  2. STRATTERA [Suspect]
     Dosage: 80 MG, DAILY (1/D)
     Route: 065
     Dates: start: 20090511
  3. WELLBUTRIN [Concomitant]
     Dosage: 150 MG, UNKNOWN
     Route: 065
  4. PAXIL [Concomitant]
     Dosage: UNK, UNKNOWN
     Route: 065
  5. TOFRANIL [Concomitant]
     Dosage: UNK, UNKNOWN
     Route: 065
  6. KLONOPIN [Concomitant]
     Dosage: UNK, UNKNOWN
     Route: 065
  7. PSEUDOEPHEDRINE HCL [Concomitant]
     Dosage: UNK, UNKNOWN
     Route: 065

REACTIONS (1)
  - DEATH [None]
